FAERS Safety Report 8277772-1 (Version None)
Quarter: 2012Q2

REPORT INFORMATION
  Report Type: 
  Country: None (occurrence: None)
  Receive Date: 20120412
  Receipt Date: 20120404
  Transmission Date: 20120825
  Serious: Yes (Hospitalization)
  Sender: FDA-Public Use
  Company Number: AU-JNJFOC-20111102590

PATIENT
  Sex: Male
  Weight: 76 kg

DRUGS (26)
  1. ONDANSETRON [Concomitant]
     Route: 065
     Dates: start: 20111209, end: 20111209
  2. NORMAL SALINE SOLUTION [Concomitant]
     Indication: VOMITING
     Route: 065
     Dates: start: 20111222, end: 20111222
  3. ABIRATERONE ACETATE [Suspect]
     Route: 048
     Dates: start: 20111017, end: 20111113
  4. CEFTRIAXONE [Concomitant]
     Indication: BACK PAIN
     Route: 065
     Dates: start: 20111102, end: 20111103
  5. METOCLOPRAMIDE [Concomitant]
     Route: 065
     Dates: start: 20111222, end: 20111223
  6. ABIRATERONE ACETATE [Suspect]
     Indication: PROSTATE CANCER METASTATIC
     Route: 048
     Dates: start: 20111121
  7. ABIRATERONE ACETATE [Suspect]
     Route: 048
     Dates: start: 20111214
  8. OXYCONTIN [Suspect]
     Indication: PAIN
     Route: 065
     Dates: start: 20120104
  9. AMPICILLIN [Concomitant]
     Indication: BACK PAIN
     Route: 065
     Dates: start: 20111102, end: 20111103
  10. METOCLOPRAMIDE [Concomitant]
     Indication: VOMITING
     Route: 065
     Dates: start: 20111209, end: 20111212
  11. GLYCERINE [Concomitant]
     Indication: CONSTIPATION
     Route: 065
     Dates: start: 20111210, end: 20111210
  12. PANADOL OSTEO [Concomitant]
     Indication: PAIN
     Route: 065
     Dates: start: 20111222, end: 20111227
  13. OMEPRAZOLE [Concomitant]
     Indication: VOMITING
     Route: 065
     Dates: start: 20111209, end: 20111212
  14. FENTANYL [Concomitant]
     Indication: PAIN
     Route: 065
     Dates: start: 20111224, end: 20111227
  15. FENTANYL [Concomitant]
     Route: 065
     Dates: start: 20111223, end: 20111223
  16. CEPHALEXIN [Concomitant]
     Indication: VOMITING
     Route: 065
     Dates: start: 20111224, end: 20111227
  17. PREDNISOLONE [Suspect]
     Indication: PROSTATE CANCER METASTATIC
     Route: 048
     Dates: start: 20111017
  18. ONDANSETRON [Concomitant]
     Indication: VOMITING
     Route: 065
     Dates: start: 20111226, end: 20111227
  19. OXYCODONE HCL [Concomitant]
     Indication: PAIN
     Route: 065
     Dates: start: 20111222, end: 20111227
  20. MOVIPREP [Concomitant]
     Indication: CONSTIPATION
     Route: 065
     Dates: start: 20111222, end: 20111222
  21. OMEPRAZOLE [Concomitant]
     Route: 065
     Dates: start: 20111223, end: 20111227
  22. ACETAMINOPHEN [Concomitant]
     Indication: BACK PAIN
     Route: 065
     Dates: start: 20111102, end: 20111103
  23. ONDANSETRON [Concomitant]
     Route: 065
     Dates: start: 20111222, end: 20111223
  24. METOCLOPRAMIDE [Concomitant]
     Route: 065
     Dates: start: 20111223, end: 20111227
  25. COLOXYL AND SENNA [Concomitant]
     Indication: CONSTIPATION
     Route: 065
     Dates: start: 20111209, end: 20111212
  26. COLOXYL AND SENNA [Concomitant]
     Route: 065
     Dates: start: 20111223, end: 20111227

REACTIONS (4)
  - HYPERKALAEMIA [None]
  - BACK PAIN [None]
  - VOMITING [None]
  - PROSTATE CANCER METASTATIC [None]
